FAERS Safety Report 19159617 (Version 1)
Quarter: 2021Q2

REPORT INFORMATION
  Report Type: Report from Study
  Country: MX (occurrence: MX)
  Receive Date: 20210420
  Receipt Date: 20210420
  Transmission Date: 20210717
  Serious: Yes (Other)
  Sender: FDA-Public Use
  Company Number: NVSC2021MX085361

PATIENT
  Sex: Male

DRUGS (1)
  1. EXFORGE HCT [Suspect]
     Active Substance: AMLODIPINE BESYLATE\HYDROCHLOROTHIAZIDE\VALSARTAN
     Indication: PRODUCT USED FOR UNKNOWN INDICATION
     Dosage: UNK, (DID NOT PROVIDE INFORMATION)
     Route: 065

REACTIONS (4)
  - Cerebrovascular disorder [Unknown]
  - Blood pressure abnormal [Unknown]
  - Drug intolerance [Unknown]
  - Renal disorder [Unknown]
